FAERS Safety Report 9850249 (Version 2)
Quarter: 2014Q1

REPORT INFORMATION
  Report Type: Spontaneous
  Country: US (occurrence: US)
  Receive Date: 20140128
  Receipt Date: 20140128
  Transmission Date: 20141002
  Serious: Yes (Life-Threatening, Hospitalization, Other)
  Sender: FDA-Public Use
  Company Number: PHHY2013US153336

PATIENT
  Age: 80 Year
  Sex: Female

DRUGS (5)
  1. LIORESAL INTRATECAL [Suspect]
     Indication: MUSCLE SPASTICITY
     Dosage: 24 UG, DAILY
     Route: 037
  2. LIORESAL INTRATECAL [Suspect]
     Dosage: 50 UG, DAILY
     Route: 037
  3. LIORESAL INTRATECAL [Suspect]
     Dosage: 24 UG, DAILY
     Route: 037
  4. GABAPENTIN [Suspect]
     Dosage: 1 DF, BID (200 MG DAILY)
     Route: 048
     Dates: end: 20101122
  5. GABAPENTIN [Suspect]
     Dosage: 3 DF, (NIGHT BEFORE HER ADMISSION TO THE HOSPITAL)
     Route: 048

REACTIONS (3)
  - Unresponsive to stimuli [Recovering/Resolving]
  - Hypotension [Recovering/Resolving]
  - Wrong drug administered [Unknown]
